FAERS Safety Report 17149512 (Version 1)
Quarter: 2019Q4

REPORT INFORMATION
  Report Type: Spontaneous
  Country: US (occurrence: US)
  Receive Date: 20191213
  Receipt Date: 20191213
  Transmission Date: 20200122
  Serious: Yes (Other)
  Sender: FDA-Public Use
  Company Number: US-TEVA-2019-US-1151228

PATIENT

DRUGS (1)
  1. FLUOXETINE HYDROCHLORIDE TEVA [Suspect]
     Active Substance: FLUOXETINE HYDROCHLORIDE
     Route: 065

REACTIONS (6)
  - Irritability [Recovering/Resolving]
  - Self-injurious ideation [Unknown]
  - Depression [Recovering/Resolving]
  - Anxiety [Recovering/Resolving]
  - Insomnia [Recovering/Resolving]
  - Product substitution issue [Unknown]
